FAERS Safety Report 9241605 (Version 1)
Quarter: 2013Q2

REPORT INFORMATION
  Report Type: Spontaneous
  Country: GB (occurrence: GB)
  Receive Date: 20130419
  Receipt Date: 20130419
  Transmission Date: 20140414
  Serious: Yes (Other)
  Sender: FDA-Public Use
  Company Number: GB-BRISTOL-MYERS SQUIBB COMPANY-18770701

PATIENT
  Sex: Female

DRUGS (1)
  1. SPRYCEL [Suspect]
     Indication: LEUKAEMIA
     Dosage: INTERUPTED: 2001, RESTARTED ON 2011
     Dates: start: 1999

REACTIONS (5)
  - Hallucination [Recovered/Resolved]
  - Tongue disorder [Recovered/Resolved]
  - Speech disorder [Recovered/Resolved]
  - Foaming at mouth [Recovered/Resolved]
  - Screaming [Recovered/Resolved]
